FAERS Safety Report 8499138-1 (Version None)
Quarter: 2012Q3

REPORT INFORMATION
  Report Type: 
  Country: None (occurrence: None)
  Receive Date: 20120710
  Receipt Date: 20120628
  Transmission Date: 20120928
  Serious: Yes (Hospitalization)
  Sender: FDA-Public Use
  Company Number: JP-ELI_LILLY_AND_COMPANY-JP201203009082

PATIENT
  Sex: Female
  Weight: 60 kg

DRUGS (9)
  1. ALOXI [Concomitant]
     Indication: PROPHYLAXIS
     Dosage: UNK
     Route: 042
     Dates: start: 20120306, end: 20120313
  2. CISPLATIN [Concomitant]
     Indication: GALLBLADDER CANCER STAGE IV
     Dosage: 40 MG, OTHER
     Route: 042
     Dates: start: 20120306, end: 20120313
  3. NORVASC [Concomitant]
     Indication: HYPERTENSION
     Dosage: UNK
     Route: 048
  4. GEMZAR [Suspect]
     Indication: GALLBLADDER CANCER STAGE IV
     Dosage: 1600 MG, OTHER
     Route: 042
     Dates: start: 20120306, end: 20120313
  5. GEMZAR [Suspect]
     Dosage: 1000 MG, OTHER
     Route: 042
     Dates: start: 20120524, end: 20120524
  6. TRAMADOL HYDROCHLORIDE [Concomitant]
  7. EMEND [Concomitant]
     Indication: PROPHYLAXIS
     Dosage: UNK
     Route: 048
     Dates: start: 20120307, end: 20120315
  8. CISPLATIN [Concomitant]
     Dosage: 30 MG, OTHER
     Route: 042
     Dates: start: 20120524, end: 20120524
  9. DECADRON                           /00016002/ [Concomitant]
     Indication: PROPHYLAXIS
     Dosage: UNK
     Route: 042
     Dates: start: 20120306, end: 20120313

REACTIONS (3)
  - CONSTIPATION [None]
  - PLATELET COUNT DECREASED [None]
  - COLITIS ISCHAEMIC [None]
